FAERS Safety Report 5878188-5 (Version None)
Quarter: 2008Q3

REPORT INFORMATION
  Report Type: 
  Country: None (occurrence: None)
  Receive Date: 20080911
  Receipt Date: 20080903
  Transmission Date: 20090109
  Serious: Yes (Hospitalization)
  Sender: FDA-Public Use
  Company Number: PHHY2008JP17285

PATIENT
  Age: 33 Year
  Sex: Female

DRUGS (4)
  1. NEORAL [Suspect]
     Indication: COLITIS ULCERATIVE
     Dosage: 200 MG/DAILY
     Route: 048
     Dates: start: 20080702
  2. PREDONINE [Suspect]
     Indication: COLITIS ULCERATIVE
     Dosage: 40 MG/DAILY
     Route: 048
  3. PREDONINE [Suspect]
     Dosage: 10 MG/DAILY
     Route: 048
  4. MUCOSTA [Concomitant]
     Dosage: 100 MG

REACTIONS (4)
  - C-REACTIVE PROTEIN INCREASED [None]
  - COMPRESSION FRACTURE [None]
  - INFECTION [None]
  - WHITE BLOOD CELL COUNT INCREASED [None]
